FAERS Safety Report 4970089-X (Version None)
Quarter: 2006Q2

REPORT INFORMATION
  Report Type: 
  Country: None (occurrence: None)
  Receive Date: 20060412
  Receipt Date: 20060125
  Transmission Date: 20061013
  Serious: Yes (Death, Hospitalization)
  Sender: FDA-Public Use
  Company Number: PHNU2006DE00662

PATIENT
  Age: 25 Year
  Sex: Male

DRUGS (4)
  1. ZANTAC [Concomitant]
     Dosage: 300 MG, QD
     Route: 048
  2. GASTROZEPIN [Concomitant]
     Dosage: 50 MG, QD
     Route: 048
  3. SOLIAN [Concomitant]
     Dosage: 200 - 200 - 100MG/DAY
     Route: 048
  4. CLOZAPINE [Suspect]
     Indication: SCHIZOPHRENIA
     Dosage: UP TO 100 - 150 - 200 MG/DAY
     Route: 048
     Dates: start: 20010101

REACTIONS (1)
  - DIABETIC HYPERGLYCAEMIC COMA [None]
